FAERS Safety Report 8130202 (Version 3)
Quarter: 2012Q4

REPORT INFORMATION
  Report Type: 
  Country: AU (occurrence: AU)
  Receive Date: 20110912
  Receipt Date: 20120914
  Transmission Date: 20130627
  Serious: Yes (Other)
  Sender: FDA-Public Use
  Company Number: PHHY2011AU80141

PATIENT
  Age: 58 Year
  Sex: Female

DRUGS (1)
  1. ACLASTA [Suspect]
     Indication: OSTEOPOROSIS
     Dosage: 5 mg, UNK
     Route: 042
     Dates: start: 20110902

REACTIONS (9)
  - Inflammation [Unknown]
  - Pain [Unknown]
  - Pigmentation disorder [Unknown]
  - Nasopharyngitis [Unknown]
  - Influenza like illness [Unknown]
  - Oral discomfort [Unknown]
  - Abdominal pain [Unknown]
  - Pain in extremity [Unknown]
  - Abdominal pain upper [Unknown]
